FAERS Safety Report 6768665-7 (Version None)
Quarter: 2010Q2

REPORT INFORMATION
  Report Type: 
  Country: None (occurrence: None)
  Receive Date: 20100614
  Receipt Date: 20100603
  Transmission Date: 20101027
  Serious: Yes (Other)
  Sender: FDA-Public Use
  Company Number: CH-WYE-G06220410

PATIENT
  Age: 34 Year
  Sex: Female

DRUGS (8)
  1. EFFEXOR XR [Suspect]
     Indication: DEPRESSION
     Dates: start: 20081201, end: 20090201
  2. CIPRALEX [Suspect]
     Indication: DEPRESSION
     Dates: start: 20090201, end: 20090201
  3. CIPRALEX [Suspect]
     Dates: start: 20090401, end: 20090801
  4. CANNABIS [Concomitant]
     Dosage: ONCE DURING THE PREGNANCY
  5. TRAZODONE HCL [Suspect]
     Dosage: 50 MG EVERY 1 PRN
     Dates: start: 20080101, end: 20090201
  6. ETHANOL [Suspect]
     Dosage: EPISODICALLY DURING THE PREGNANCY
  7. BUSPAR [Suspect]
     Dates: start: 20080101, end: 20090201
  8. OXAZEPAM [Suspect]
     Dates: start: 20090201, end: 20090201

REACTIONS (2)
  - DRUG EXPOSURE DURING PREGNANCY [None]
  - POSTPARTUM HAEMORRHAGE [None]
